FAERS Safety Report 7074597-X (Version None)
Quarter: 2010Q4

REPORT INFORMATION
  Report Type: 
  Country: None (occurrence: None)
  Receive Date: 20101029
  Receipt Date: 20101027
  Transmission Date: 20110411
  Serious: Yes (Congenital Anomaly)
  Sender: FDA-Public Use
  Company Number: A0747807A

PATIENT
  Sex: Female
  Weight: 2.9 kg

DRUGS (2)
  1. PAXIL [Suspect]
     Indication: DEPRESSION
     Dosage: 20MG PER DAY
     Dates: start: 20060501, end: 20071101
  2. PAROXETINE HCL [Suspect]
     Indication: DEPRESSION
     Dates: start: 20060511, end: 20070730

REACTIONS (5)
  - DRUG EXPOSURE DURING PREGNANCY [None]
  - HEART DISEASE CONGENITAL [None]
  - MULTIPLE CONGENITAL ABNORMALITIES [None]
  - RESPIRATORY DISTRESS [None]
  - TACHYPNOEA [None]
